FAERS Safety Report 6078649-2 (Version None)
Quarter: 2009Q1

REPORT INFORMATION
  Report Type: 
  Country: None (occurrence: None)
  Receive Date: 20090216
  Receipt Date: 20090204
  Transmission Date: 20090719
  Serious: Yes (Other)
  Sender: FDA-Public Use
  Company Number: PHEH2007US12302

PATIENT
  Sex: Female

DRUGS (4)
  1. AREDIA [Suspect]
  2. STEROIDS NOS [Concomitant]
  3. KLONOPIN [Concomitant]
  4. ZOLPIDEM [Concomitant]

REACTIONS (7)
  - ANXIETY [None]
  - DEFORMITY [None]
  - DEPRESSION [None]
  - INFECTION [None]
  - OSTEONECROSIS [None]
  - PAIN [None]
  - PLANTAR FASCIITIS [None]
